FAERS Safety Report 7800088-1 (Version None)
Quarter: 2011Q4

REPORT INFORMATION
  Report Type: 
  Country: None (occurrence: None)
  Receive Date: 20111006
  Receipt Date: 20110923
  Transmission Date: 20120403
  Serious: Yes (Hospitalization)
  Sender: FDA-Public Use
  Company Number: CH-ROCHE-803786

PATIENT
  Sex: Female
  Weight: 59 kg

DRUGS (7)
  1. VEMURAFENIB [Suspect]
     Indication: METASTATIC MALIGNANT MELANOMA
     Route: 048
  2. NOVALGIN [Concomitant]
  3. PANTOPRAZOLE [Concomitant]
  4. LEVOTHYROXINE SODIUM [Concomitant]
  5. REMERON [Concomitant]
  6. DEXAMETHASONE [Concomitant]
  7. LYRICA [Concomitant]

REACTIONS (2)
  - BREAST DISCOMFORT [None]
  - DYSPNOEA [None]
